FAERS Safety Report 8924774 (Version 1)
Quarter: 2012Q4

REPORT INFORMATION
  Report Type: 
  Country: US (occurrence: US)
  Receive Date: 20121126
  Receipt Date: 20121126
  Transmission Date: 20130627
  Serious: No
  Sender: FDA-Public Use
  Company Number: US-PFIZER INC-2012295034

PATIENT
  Sex: Male

DRUGS (2)
  1. XANAX XR [Suspect]
     Dosage: 0.5 mg, UNK
  2. XANAX XR [Suspect]
     Dosage: UNK

REACTIONS (1)
  - Malaise [Unknown]
